FAERS Safety Report 5088832-0 (Version None)
Quarter: 2006Q3

REPORT INFORMATION
  Report Type: 
  Country: None (occurrence: None)
  Receive Date: 20060825
  Receipt Date: 20060227
  Transmission Date: 20061208
  Serious: Yes (Other)
  Sender: FDA-Public Use
  Company Number: US-ALLERGAN-200602094

PATIENT
  Sex: Female
  Weight: 50 kg

DRUGS (2)
  1. WELLBUTRIN [Concomitant]
     Indication: DRUG USE FOR UNKNOWN INDICATION
     Route: 048
  2. BOTOX COSMETIC [Suspect]
     Indication: SKIN WRINKLING
     Dosage: UNK, SINGLE
     Route: 030
     Dates: start: 20060221, end: 20060221

REACTIONS (12)
  - ANGIONEUROTIC OEDEMA [None]
  - CIRCUMORAL OEDEMA [None]
  - DYSPHAGIA [None]
  - DYSPNOEA [None]
  - ERYTHEMA [None]
  - EYELID OEDEMA [None]
  - FACIAL PAIN [None]
  - HYPERCORTICOIDISM [None]
  - HYPERSENSITIVITY [None]
  - SUBCUTANEOUS NODULE [None]
  - SWELLING FACE [None]
  - THROAT TIGHTNESS [None]
